FAERS Safety Report 5355315-X (Version None)
Quarter: 2007Q2

REPORT INFORMATION
  Report Type: 
  Country: None (occurrence: None)
  Receive Date: 20070601
  Receipt Date: 20070308
  Transmission Date: 20071010
  Serious: No
  Sender: FDA-Public Use
  Company Number: S07-USA-01066-01

PATIENT
  Age: 54 Year
  Sex: Female

DRUGS (7)
  1. CAMPRAL [Suspect]
     Indication: ALCOHOLISM
     Dosage: 666 MG TID PO
     Route: 048
     Dates: start: 20050101
  2. PREVACID [Suspect]
     Dosage: 30 MG QD
     Dates: start: 20070208
  3. EFFEXOR [Suspect]
     Indication: DEPRESSION
     Dosage: 75 MG QD
     Dates: start: 20070201
  4. PROZAC [Concomitant]
  5. LIPITOR [Concomitant]
  6. ZIAC [Concomitant]
  7. FIBER THERAPY (NOS) [Concomitant]

REACTIONS (4)
  - ALCOHOLISM [None]
  - DRUG INEFFECTIVE [None]
  - DRUG INTERACTION [None]
  - WEIGHT INCREASED [None]
